FAERS Safety Report 20489408 (Version 3)
Quarter: 2022Q1

REPORT INFORMATION
  Report Type: Report from Study
  Country: US (occurrence: US)
  Receive Date: 20220218
  Receipt Date: 20220317
  Transmission Date: 20220423
  Serious: Yes (Other)
  Sender: FDA-Public Use
  Company Number: US-SANOFI-00971809

PATIENT
  Age: 69 Year
  Sex: Male

DRUGS (2)
  1. DUPILUMAB [Suspect]
     Active Substance: DUPILUMAB
     Indication: Eczema
     Dosage: 300MG, QOW
     Route: 058
     Dates: start: 20220126, end: 20220126
  2. DUPILUMAB [Suspect]
     Active Substance: DUPILUMAB
     Dosage: 300 MG, QOW
     Route: 058
     Dates: start: 20220209

REACTIONS (13)
  - Pneumonia [Recovering/Resolving]
  - Injection site urticaria [Not Recovered/Not Resolved]
  - Cough [Not Recovered/Not Resolved]
  - Feeling abnormal [Not Recovered/Not Resolved]
  - Dyspnoea [Unknown]
  - Sleep disorder due to a general medical condition [Unknown]
  - Eye irritation [Unknown]
  - Weight decreased [Recovering/Resolving]
  - Decreased appetite [Unknown]
  - Injection site pruritus [Not Recovered/Not Resolved]
  - Injection site erythema [Not Recovered/Not Resolved]
  - Rash [Unknown]
  - Eye pruritus [Unknown]

NARRATIVE: CASE EVENT DATE: 20220101
